FAERS Safety Report 12674366 (Version 1)
Quarter: 2016Q3

REPORT INFORMATION
  Report Type: Spontaneous
  Country: US (occurrence: US)
  Receive Date: 20160822
  Receipt Date: 20160822
  Transmission Date: 20161109
  Serious: No
  Sender: FDA-Public Use
  Company Number: US-BEH-2015055276

PATIENT
  Sex: Male
  Weight: 86.18 kg

DRUGS (17)
  1. DIPHENHYDRAMINE. [Concomitant]
     Active Substance: DIPHENHYDRAMINE
  2. SODIUM CHLORIDE. [Concomitant]
     Active Substance: SODIUM CHLORIDE
  3. LMX [Concomitant]
     Active Substance: LIDOCAINE
  4. VALSARTAN. [Concomitant]
     Active Substance: VALSARTAN
  5. FLOMAX [Concomitant]
     Active Substance: TAMSULOSIN HYDROCHLORIDE
  6. EPIPEN [Concomitant]
     Active Substance: EPINEPHRINE
  7. SENNA PLUS [Concomitant]
     Active Substance: DOCUSATE SODIUM\SENNOSIDES\SENNOSIDES A AND B
  8. MIRALAX [Concomitant]
     Active Substance: POLYETHYLENE GLYCOL 3350
  9. VENLAFAXINE [Concomitant]
     Active Substance: VENLAFAXINE HYDROCHLORIDE
  10. OXYGEN. [Concomitant]
     Active Substance: OXYGEN
  11. VITAMIN D3 [Concomitant]
     Active Substance: CHOLECALCIFEROL
  12. ZEMAIRA [Suspect]
     Active Substance: .ALPHA.1-PROTEINASE INHIBITOR HUMAN
     Indication: ALPHA-1 ANTI-TRYPSIN DEFICIENCY
     Dosage: ??-AUG-2009
     Route: 042
  13. ARICEPT [Concomitant]
     Active Substance: DONEPEZIL HYDROCHLORIDE
  14. ZOCOR [Concomitant]
     Active Substance: SIMVASTATIN
  15. FOLIC ACID. [Concomitant]
     Active Substance: FOLIC ACID
  16. XANAX [Concomitant]
     Active Substance: ALPRAZOLAM
  17. MIRTAZAPINE. [Concomitant]
     Active Substance: MIRTAZAPINE

REACTIONS (1)
  - Epistaxis [Recovered/Resolved]
